FAERS Safety Report 21762465 (Version 1)
Quarter: 2022Q4

REPORT INFORMATION
  Report Type: Spontaneous
  Country: TN (occurrence: TN)
  Receive Date: 20221221
  Receipt Date: 20221221
  Transmission Date: 20230113
  Serious: Yes (Other)
  Sender: FDA-Public Use
  Company Number: TN-CMP PHARMA-2022CMP00042

PATIENT
  Age: 35 Year
  Sex: Female

DRUGS (1)
  1. HYDROCORTISONE [Suspect]
     Active Substance: HYDROCORTISONE
     Indication: Colitis
     Dosage: ^HIGH DOSES^

REACTIONS (3)
  - Psychotic disorder [Recovered/Resolved]
  - Hallucinations, mixed [Recovered/Resolved]
  - Persecutory delusion [Recovered/Resolved]
